FAERS Safety Report 5014621-9 (Version None)
Quarter: 2006Q2

REPORT INFORMATION
  Report Type: 
  Country: None (occurrence: None)
  Receive Date: 20060412
  Receipt Date: 20051108
  Transmission Date: 20061013
  Serious: Yes (Life-Threatening, Hospitalization)
  Sender: FDA-Public Use
  Company Number: 2005-BP-16015BP

PATIENT
  Age: 84 Year
  Sex: Female
  Weight: 59 kg

DRUGS (8)
  1. MOBIC [Suspect]
     Indication: ARTHRALGIA
     Dosage: 15 MG (15 MG, 1 IN 1 D), PO
     Route: 048
     Dates: start: 20050601, end: 20050625
  2. MOBIC [Suspect]
     Indication: PROCEDURAL PAIN
     Dosage: 15 MG (15 MG, 1 IN 1 D), PO
     Route: 048
     Dates: start: 20050601, end: 20050625
  3. NORVASC [Concomitant]
  4. TIAMTERENE/HYDROCHLOROTHIAZIDE [Concomitant]
  5. AMBIEN [Concomitant]
  6. COSOPT (COSOPT [Concomitant]
  7. XALATAN [Concomitant]
  8. EXTRA STRENGTH TYLENOL [Concomitant]

REACTIONS (3)
  - DIARRHOEA [None]
  - GASTROINTESTINAL HAEMORRHAGE [None]
  - INTESTINAL ULCER [None]
